FAERS Safety Report 21248239 (Version 3)
Quarter: 2022Q3

REPORT INFORMATION
  Report Type: Spontaneous
  Country: US (occurrence: US)
  Receive Date: 20220824
  Receipt Date: 20220908
  Transmission Date: 20221026
  Serious: Yes (Other)
  Sender: FDA-Public Use
  Company Number: US-PFIZER INC-202201083251

PATIENT
  Age: 75 Year
  Sex: Male
  Weight: 82.55 kg

DRUGS (2)
  1. CALAN SR [Suspect]
     Active Substance: VERAPAMIL HYDROCHLORIDE
     Indication: Hypertension
     Dosage: 240 MG, 1X/DAY
     Route: 048
     Dates: start: 20220818
  2. CALAN SR [Suspect]
     Active Substance: VERAPAMIL HYDROCHLORIDE
     Indication: Atrial fibrillation

REACTIONS (9)
  - Blood pressure increased [Unknown]
  - Presyncope [Recovering/Resolving]
  - Dizziness [Recovering/Resolving]
  - Muscular weakness [Unknown]
  - Asthenia [Unknown]
  - Fatigue [Unknown]
  - Visual impairment [Unknown]
  - Heart rate decreased [Unknown]
  - Hypoacusis [Unknown]

NARRATIVE: CASE EVENT DATE: 20220801
